FAERS Safety Report 5706566-3 (Version None)
Quarter: 2008Q2

REPORT INFORMATION
  Report Type: 
  Country: None (occurrence: None)
  Receive Date: 20080415
  Receipt Date: 20080401
  Transmission Date: 20081010
  Serious: Yes (Hospitalization)
  Sender: FDA-Public Use
  Company Number: FR-ELI_LILLY_AND_COMPANY-FR200804001515

PATIENT
  Age: 32 Year
  Sex: Female

DRUGS (1)
  1. PROZAC [Suspect]
     Dosage: 20 MG, DAILY (1/D)
     Route: 048

REACTIONS (6)
  - CONSTIPATION [None]
  - DRY EYE [None]
  - DRY MOUTH [None]
  - FAECALOMA [None]
  - NASAL DRYNESS [None]
  - VULVOVAGINAL DRYNESS [None]
